FAERS Safety Report 9274350 (Version 1)
Quarter: 2013Q2

REPORT INFORMATION
  Report Type: Spontaneous
  Country: ZA (occurrence: ZA)
  Receive Date: 20130506
  Receipt Date: 20130506
  Transmission Date: 20140414
  Serious: Yes (Disabling, Other)
  Sender: FDA-Public Use
  Company Number: ZA-009507513-1304ZAF017187

PATIENT
  Age: 75 Year
  Sex: Male
  Weight: 72 kg

DRUGS (3)
  1. EZETROL [Suspect]
     Indication: BLOOD CHOLESTEROL INCREASED
     Dosage: UNK
     Route: 048
     Dates: start: 201208, end: 201211
  2. EZETROL 10MG [Suspect]
     Indication: BLOOD CHOLESTEROL INCREASED
     Dosage: 10 MG, QD
     Route: 048
     Dates: start: 20130221, end: 20130321
  3. CRESTOR [Suspect]
     Dosage: UNK
     Route: 048
     Dates: start: 201208, end: 201211

REACTIONS (13)
  - Liver disorder [Not Recovered/Not Resolved]
  - Myoglobin urine [Unknown]
  - Blood creatine phosphokinase increased [Recovered/Resolved]
  - Gait disturbance [Recovered/Resolved]
  - Muscle disorder [Unknown]
  - Renal disorder [Not Recovered/Not Resolved]
  - Decreased appetite [Unknown]
  - Asthenia [Unknown]
  - Guillain-Barre syndrome [None]
  - Rhabdomyolysis [None]
  - Diabetes mellitus [None]
  - Hypothyroidism [None]
  - Epstein-Barr virus antibody positive [None]
